FAERS Safety Report 6361322-0 (Version None)
Quarter: 2009Q3

REPORT INFORMATION
  Report Type: 
  Country: None (occurrence: None)
  Receive Date: 20090918
  Receipt Date: 20090914
  Transmission Date: 20100115
  Serious: Yes (Life-Threatening, Hospitalization)
  Sender: FDA-Public Use
  Company Number: A0806590A

PATIENT
  Age: 40 Year
  Sex: Male
  Weight: 104.1 kg

DRUGS (16)
  1. ZANAMIVIR [Suspect]
     Dosage: 600MG TWICE PER DAY
     Route: 042
     Dates: start: 20090829, end: 20090830
  2. CLONIDINE [Concomitant]
     Indication: HYPERTENSION
     Dosage: .2MG TWICE PER DAY
     Route: 050
     Dates: start: 20090825
  3. CHOLECALCIFEROL [Concomitant]
     Indication: SUPPLEMENTATION THERAPY
     Dosage: 1000UNIT PER DAY
     Route: 050
     Dates: start: 20090814
  4. ENOXAPARIN [Concomitant]
     Indication: PULMONARY EMBOLISM
     Dosage: 100MG TWICE PER DAY
     Route: 058
     Dates: start: 20090827
  5. ESOMEPRAZOLE [Concomitant]
     Indication: PROPHYLAXIS
     Dosage: 40MG PER DAY
     Route: 050
     Dates: start: 20090805
  6. FENTANYL [Concomitant]
     Indication: PAIN
     Route: 042
     Dates: start: 20090821
  7. FERROUS SULFATE TAB [Concomitant]
     Indication: SUPPLEMENTATION THERAPY
     Dosage: 300MG TWICE PER DAY
     Route: 050
     Dates: start: 20090807
  8. FOLIC ACID [Concomitant]
     Indication: SUPPLEMENTATION THERAPY
     Dosage: 1MG TWICE PER DAY
     Route: 050
     Dates: start: 20090814
  9. NOVOLOG [Concomitant]
     Route: 058
     Dates: start: 20090828
  10. LEVOTHYROXINE SODIUM [Concomitant]
     Indication: HYPOTHYROIDISM
     Dosage: 75MCG PER DAY
     Route: 042
     Dates: start: 20090812
  11. LORAZEPAM [Concomitant]
     Indication: SEDATION
     Route: 042
     Dates: start: 20090805
  12. METOPROLOL TARTRATE [Concomitant]
     Indication: HYPERTENSION
     Dosage: 12.5MG TWICE PER DAY
     Route: 050
     Dates: start: 20090822
  13. NEPHRO-VITE [Concomitant]
     Indication: SUPPLEMENTATION THERAPY
     Dosage: 1TAB PER DAY
     Route: 050
     Dates: start: 20090814
  14. OLANZAPINE [Concomitant]
     Indication: DELIRIUM
     Dosage: 10MG THREE TIMES PER DAY
     Route: 050
     Dates: start: 20090829
  15. ZINC SULFATE [Concomitant]
     Indication: SUPPLEMENTATION THERAPY
     Dosage: 220MG THREE TIMES PER DAY
     Route: 050
     Dates: start: 20090814
  16. OSELTAMIVIR [Concomitant]
     Dates: start: 20090805, end: 20090819

REACTIONS (10)
  - BRAIN HYPOXIA [None]
  - BRONCHOSPASM [None]
  - HYPOXIA [None]
  - RENAL IMPAIRMENT [None]
  - RESPIRATORY ARREST [None]
  - RESPIRATORY FAILURE [None]
  - TACHYCARDIA [None]
  - TACHYPNOEA [None]
  - TRACHEOSTOMY MALFUNCTION [None]
  - URINE OUTPUT DECREASED [None]
